FAERS Safety Report 16169026 (Version 1)
Quarter: 2019Q2

REPORT INFORMATION
  Report Type: Report from Study
  Country: US (occurrence: US)
  Receive Date: 20190408
  Receipt Date: 20190408
  Transmission Date: 20190711
  Serious: Yes (Other)
  Sender: FDA-Public Use
  Company Number: US-ROCHE-2039366

PATIENT
  Sex: Female

DRUGS (2)
  1. VALCYTE [Suspect]
     Active Substance: VALGANCICLOVIR HYDROCHLORIDE
     Dosage: 1 TAB EVERY MON, WED, + FRI
     Route: 048
  2. VALCYTE [Suspect]
     Active Substance: VALGANCICLOVIR HYDROCHLORIDE
     Indication: LUNG TRANSPLANT
     Dosage: 14/DEC/2016 LAST TREATMENT
     Route: 048

REACTIONS (5)
  - Intentional product use issue [Unknown]
  - Malignant muscle neoplasm [Unknown]
  - Macule [Unknown]
  - Off label use [Unknown]
  - Inner ear disorder [Unknown]
